FAERS Safety Report 12547151 (Version 1)
Quarter: 2016Q3

REPORT INFORMATION
  Report Type: Report from Study
  Country: AR (occurrence: AR)
  Receive Date: 20160711
  Receipt Date: 20160711
  Transmission Date: 20161109
  Serious: Yes (Other)
  Sender: FDA-Public Use
  Company Number: PHHY2016AR085629

PATIENT
  Sex: Male

DRUGS (4)
  1. DIOVAN [Suspect]
     Active Substance: VALSARTAN
     Indication: BLOOD CHOLESTEROL INCREASED
     Dosage: 1 DF, QD (LAST YEAR)
     Route: 065
  2. LOSARTAN AND HYDROCHLOROTHIAZIDE [Suspect]
     Active Substance: HYDROCHLOROTHIAZIDE\LOSARTAN POTASSIUM
     Indication: HYPERTENSION
     Dosage: UNK
     Route: 065
  3. DIOVAN [Suspect]
     Active Substance: VALSARTAN
     Indication: HYPERTENSION
     Dosage: 1 DF, QD (2 MONTH AGO APPROXIMATELY)
     Route: 065
  4. DIOVAN [Suspect]
     Active Substance: VALSARTAN
     Dosage: 1 DF, QD (THREE WEEKS AGO AT NIGHT)
     Route: 065

REACTIONS (5)
  - Pneumonia [Unknown]
  - Blood pressure increased [Unknown]
  - Oropharyngeal pain [Unknown]
  - Headache [Unknown]
  - Neck pain [Unknown]
